FAERS Safety Report 9548304 (Version 3)
Quarter: 2014Q1

REPORT INFORMATION
  Report Type: Spontaneous
  Country: CN (occurrence: CN)
  Receive Date: 20130924
  Receipt Date: 20140218
  Transmission Date: 20141002
  Serious: Yes (Death, Other)
  Sender: FDA-Public Use
  Company Number: CN-PFIZER INC-2013268671

PATIENT
  Age: 72 Year
  Sex: Male

DRUGS (1)
  1. SUTENT [Suspect]
     Indication: GASTROINTESTINAL STROMAL TUMOUR
     Dosage: 37.5 MG, 1X/DAY (AFTER 4 WEEKS, 2 WEEKS OF WITHDRAWAL)
     Route: 048

REACTIONS (5)
  - Organ failure [Fatal]
  - Hepatic function abnormal [Unknown]
  - White blood cell disorder [Unknown]
  - Coagulopathy [Unknown]
  - Hypertension [Unknown]
